FAERS Safety Report 19323632 (Version 1)
Quarter: 2021Q2

REPORT INFORMATION
  Report Type: Spontaneous
  Country: DE (occurrence: DE)
  Receive Date: 20210528
  Receipt Date: 20210528
  Transmission Date: 20210717
  Serious: Yes (Hospitalization, Other)
  Sender: FDA-Public Use
  Company Number: DE-NOVOPROD-815005

PATIENT
  Age: 27 Year
  Sex: Female

DRUGS (8)
  1. UTROGEST LUTEAL [Suspect]
     Active Substance: PROGESTERONE
     Indication: ASSISTED REPRODUCTIVE TECHNOLOGY
     Dosage: 2 DF QD
     Route: 067
  2. TRIPTOFEM [Suspect]
     Active Substance: TRIPTORELIN ACETATE
     Indication: ASSISTED REPRODUCTIVE TECHNOLOGY
     Dosage: 1 DF
     Route: 058
     Dates: start: 20210228
  3. BEMFOLA [Suspect]
     Active Substance: FOLLITROPIN ALFA
     Indication: ASSISTED REPRODUCTIVE TECHNOLOGY
     Dosage: 150 IU, QD
     Route: 065
  4. HCG [Suspect]
     Active Substance: GONADOTROPHIN, CHORIONIC
     Indication: ASSISTED REPRODUCTIVE TECHNOLOGY
     Dosage: 500 IU
     Route: 065
  5. ESTRIFAM [ESTRADIOL HEMIHYDRATE] [Suspect]
     Active Substance: ESTRADIOL HEMIHYDRATE
     Indication: ASSISTED REPRODUCTIVE TECHNOLOGY
     Dosage: 2 DF QD
     Route: 067
  6. PROGESTAN [Suspect]
     Active Substance: PROGESTERONE
     Indication: ASSISTED REPRODUCTIVE TECHNOLOGY
     Dosage: 9 DF QD (3X3)
     Route: 067
  7. ORGALUTRAN [Suspect]
     Active Substance: GANIRELIX ACETATE
     Indication: ASSISTED REPRODUCTIVE TECHNOLOGY
     Dosage: UNK (DOWNREGULATION )
     Route: 065
  8. TRIPTOFEM [Suspect]
     Active Substance: TRIPTORELIN ACETATE
     Indication: OVULATION INDUCTION

REACTIONS (3)
  - Ovarian hyperstimulation syndrome [Recovered/Resolved]
  - Adverse reaction [Recovered/Resolved]
  - Off label use [Unknown]

NARRATIVE: CASE EVENT DATE: 20210301
